FAERS Safety Report 5404356-2 (Version None)
Quarter: 2007Q3

REPORT INFORMATION
  Report Type: 
  Country: None (occurrence: None)
  Receive Date: 20070802
  Receipt Date: 20070724
  Transmission Date: 20080115
  Serious: Yes (Other)
  Sender: FDA-Public Use
  Company Number: US-PFIZER INC-2007027469

PATIENT
  Sex: Female

DRUGS (3)
  1. XALATAN [Suspect]
     Indication: OCULAR HYPERTENSION
     Dosage: FREQ:FREQUENCY: QPM
     Route: 047
     Dates: start: 20070228, end: 20070404
  2. VASOTEC [Concomitant]
  3. ASPIRIN [Concomitant]
     Dosage: DAILY DOSE:81MG

REACTIONS (1)
  - EPISTAXIS [None]
